FAERS Safety Report 16165196 (Version 1)
Quarter: 2019Q2

REPORT INFORMATION
  Report Type: Report from Study
  Country: US (occurrence: US)
  Receive Date: 20190405
  Receipt Date: 20190405
  Transmission Date: 20190711
  Serious: Yes (Hospitalization)
  Sender: FDA-Public Use
  Company Number: US-ACTELION-A-US2019-187600

PATIENT
  Age: 35 Year
  Sex: Female
  Weight: 93.88 kg

DRUGS (4)
  1. REMODULIN [Suspect]
     Active Substance: TREPROSTINIL
     Indication: PRODUCT USED FOR UNKNOWN INDICATION
     Route: 065
  2. OPSUMIT [Suspect]
     Active Substance: MACITENTAN
     Indication: PULMONARY ARTERIAL HYPERTENSION
     Dosage: 10 MG, QD
     Route: 048
  3. ELIQUIS [Concomitant]
     Active Substance: APIXABAN
  4. SILDENAFIL CITRATE. [Concomitant]
     Active Substance: SILDENAFIL CITRATE

REACTIONS (6)
  - Catheter site dryness [Unknown]
  - Catheter site irritation [Unknown]
  - Catheter site erythema [Unknown]
  - Catheter site pruritus [Unknown]
  - Catheter site warmth [Unknown]
  - Catheter site swelling [Unknown]

NARRATIVE: CASE EVENT DATE: 201903
